FAERS Safety Report 20833578 (Version 1)
Quarter: 2022Q2

REPORT INFORMATION
  Report Type: Spontaneous
  Country: None (occurrence: None)
  Receive Date: 20220516
  Receipt Date: 20220516
  Transmission Date: 20220721
  Serious: No
  Sender: FDA-Public Use
  Company Number: DE-ROCHE-2235012

PATIENT
  Weight: 69 kg

DRUGS (27)
  1. OCREVUS [Suspect]
     Active Substance: OCRELIZUMAB
     Dates: start: 20181212
  2. OCREVUS [Suspect]
     Active Substance: OCRELIZUMAB
     Dates: start: 20181227
  3. OCREVUS [Suspect]
     Active Substance: OCRELIZUMAB
     Dosage: ONCE IN A 201 DAYS
     Dates: start: 20190627
  4. OCREVUS [Suspect]
     Active Substance: OCRELIZUMAB
     Dates: start: 20200731, end: 20200731
  5. OCREVUS [Suspect]
     Active Substance: OCRELIZUMAB
     Dates: start: 20210521
  6. CORTISONE [Suspect]
     Active Substance: CORTISONE
     Dosage: 3 X 500 MG
     Dates: start: 201901
  7. CERTOPARIN SODIUM [Suspect]
     Active Substance: CERTOPARIN SODIUM
  8. CERTOPARIN SODIUM [Suspect]
     Active Substance: CERTOPARIN SODIUM
     Dates: start: 20201007
  9. COVID-19 VACCINE NOS [Suspect]
     Active Substance: COVID-19 VACCINE NOS
  10. COVID-19 VACCINE [Concomitant]
  11. ESCITALOPRAM [Concomitant]
     Active Substance: ESCITALOPRAM OXALATE
  12. BRONCHICUM ELIXIR [Concomitant]
  13. ACETAMINOPHEN [Concomitant]
     Active Substance: ACETAMINOPHEN
  14. OPIPRAMOL [Concomitant]
     Active Substance: OPIPRAMOL
  15. PREGABALIN [Concomitant]
     Active Substance: PREGABALIN
     Dosage: 2 TO 4 TABLETS DAILY
  16. PREGABALIN [Concomitant]
     Active Substance: PREGABALIN
  17. OMEPRAZOLE [Concomitant]
     Active Substance: OMEPRAZOLE
  18. SPASMEX (GERMANY) [Concomitant]
  19. VITAMIN D3 [Concomitant]
     Active Substance: CHOLECALCIFEROL
  20. DIMENHYDRINATE [Concomitant]
     Active Substance: DIMENHYDRINATE
  21. NABIXIMOLS [Concomitant]
     Active Substance: NABIXIMOLS
  22. VITAMIN D3 [Concomitant]
     Active Substance: CHOLECALCIFEROL
  23. ALBUTEROL [Concomitant]
     Active Substance: ALBUTEROL
  24. MCP [Concomitant]
     Active Substance: METOCLOPRAMIDE HYDROCHLORIDE
  25. HERBALS [Concomitant]
     Active Substance: HERBALS
  26. IBUPROFEN [Concomitant]
     Active Substance: IBUPROFEN
  27. METAMIZOLE [Concomitant]
     Active Substance: METAMIZOLE

REACTIONS (44)
  - Irritable bowel syndrome [None]
  - Renal pain [None]
  - Blood pressure fluctuation [None]
  - Wheelchair user [None]
  - Pruritus [None]
  - Blood pressure decreased [None]
  - Fall [None]
  - Abdominal pain upper [None]
  - Nasopharyngitis [None]
  - Palpitations [None]
  - Neuralgia [None]
  - Muscular weakness [None]
  - Contusion [None]
  - Multiple sclerosis relapse [None]
  - B-lymphocyte count decreased [None]
  - Fatigue [None]
  - Pain in extremity [None]
  - Nausea [None]
  - Lymphocyte count increased [None]
  - Eyelids pruritus [None]
  - Weight increased [None]
  - C-reactive protein increased [None]
  - Headache [None]
  - Allergy to animal [None]
  - Urinary tract infection [None]
  - Gait disturbance [None]
  - White blood cell count increased [None]
  - Body temperature increased [None]
  - Disturbance in attention [None]
  - Heart rate increased [None]
  - Influenza like illness [None]
  - Muscle spasticity [None]
  - Off label use [None]
  - Viral upper respiratory tract infection [None]
  - Respiratory tract infection bacterial [None]
  - Dizziness [None]
  - Hypersensitivity [None]
  - Bronchitis [None]
  - Pyelitis [None]
  - Abdominal pain upper [None]
  - Nausea [None]
  - Fatigue [None]
  - Aphasia [None]
  - Autoimmune thyroiditis [None]

NARRATIVE: CASE EVENT DATE: 20181212
